FAERS Safety Report 4431517-1 (Version None)
Quarter: 2004Q3

REPORT INFORMATION
  Report Type: 
  Country: None (occurrence: None)
  Receive Date: 20040726
  Receipt Date: 20040415
  Transmission Date: 20050211
  Serious: No
  Sender: FDA-Public Use
  Company Number: USA040464966

PATIENT
  Age: 77 Year
  Sex: Female
  Weight: 62 kg

DRUGS (8)
  1. FORTEO [Suspect]
     Indication: OSTEOPOROSIS
     Dosage: 20 UG/1 DAY
     Dates: start: 20040201
  2. EVISTA [Concomitant]
  3. COUMADIN [Concomitant]
  4. PLAVIX [Concomitant]
  5. CELEBREX [Concomitant]
  6. SYNTHROID [Concomitant]
  7. NORVASC [Concomitant]
  8. CALTRATE (CALCIUM CARBONATE) [Concomitant]

REACTIONS (2)
  - CATARACT [None]
  - INJECTION SITE HAEMORRHAGE [None]
